FAERS Safety Report 10523788 (Version 1)
Quarter: 2014Q4

REPORT INFORMATION
  Report Type: Spontaneous
  Country: US (occurrence: None)
  Receive Date: 20141014
  Receipt Date: 20141014
  Transmission Date: 20150528
  Serious: No
  Sender: FDA-Public Use
  Company Number: None

PATIENT
  Age: 58 Year
  Sex: Female
  Weight: 81.65 kg

DRUGS (2)
  1. DULOXETINE [Suspect]
     Active Substance: DULOXETINE
     Indication: DEPRESSION
     Dosage: 2 CAPSULES QD ORAL
     Route: 048
     Dates: start: 20140908, end: 20141011
  2. DULOXETINE 60 MG [Suspect]
     Active Substance: DULOXETINE

REACTIONS (4)
  - Product substitution issue [None]
  - Product quality issue [None]
  - Depression [None]
  - Drug effect decreased [None]
